FAERS Safety Report 16237317 (Version 1)
Quarter: 2019Q2

REPORT INFORMATION
  Report Type: Report from Study
  Country: None (occurrence: BR)
  Receive Date: 20190425
  Receipt Date: 20190425
  Transmission Date: 20190711
  Serious: Yes (Hospitalization, Other)
  Sender: FDA-Public Use
  Company Number: BR-ABBVIE-19K-020-2751978-00

PATIENT
  Sex: Female
  Weight: 56.5 kg

DRUGS (2)
  1. HUMIRA [Suspect]
     Active Substance: ADALIMUMAB
     Indication: ANKYLOSING SPONDYLITIS
     Route: 058
     Dates: start: 20190122, end: 2019
  2. AMLODIPINE [Concomitant]
     Active Substance: AMLODIPINE BESYLATE
     Indication: HYPERTENSION

REACTIONS (7)
  - Body fat disorder [Not Recovered/Not Resolved]
  - Influenza [Unknown]
  - Procedural site reaction [Unknown]
  - Skin discolouration [Unknown]
  - Pain [Unknown]
  - Therapeutic product effect incomplete [Unknown]
  - Post procedural swelling [Unknown]

NARRATIVE: CASE EVENT DATE: 2019
